FAERS Safety Report 12673679 (Version 4)
Quarter: 2017Q1

REPORT INFORMATION
  Report Type: Spontaneous
  Country: HR (occurrence: HR)
  Receive Date: 20160822
  Receipt Date: 20170321
  Transmission Date: 20170428
  Serious: Yes (Hospitalization, Other)
  Sender: FDA-Public Use
  Company Number: HR-BAYER-2016-157231

PATIENT
  Age: 66 Year
  Sex: Male

DRUGS (7)
  1. CIPROFLOXACIN. [Suspect]
     Active Substance: CIPROFLOXACIN
     Indication: URINARY TRACT INFECTION
  2. PARACETAMOL [Concomitant]
     Active Substance: ACETAMINOPHEN
  3. HALOPERIDOL. [Interacting]
     Active Substance: HALOPERIDOL
     Indication: PERSONALITY CHANGE DUE TO A GENERAL MEDICAL CONDITION
  4. AMOXICILLIN W/CLAVULANIC ACID [Concomitant]
     Active Substance: AMOXICILLIN\CLAVULANIC ACID
     Indication: SWELLING FACE
     Dosage: UNK
  5. HEPARIN [Concomitant]
     Active Substance: HEPARIN SODIUM
     Dosage: UNK
  6. MEROPENEM. [Concomitant]
     Active Substance: MEROPENEM
     Dosage: 1 G, TID
  7. HALOPERIDOL. [Interacting]
     Active Substance: HALOPERIDOL
     Indication: AGGRESSION
     Dosage: 1 MG, ONCE

REACTIONS (11)
  - Extrapyramidal disorder [Recovered/Resolved]
  - Pathogen resistance [None]
  - Dystonia [Recovered/Resolved]
  - Sedation [None]
  - Clostridium difficile colitis [None]
  - Hypotension [None]
  - Drug ineffective [None]
  - Dyspnoea [None]
  - Tachycardia [None]
  - Urosepsis [None]
  - Drug interaction [None]

NARRATIVE: CASE EVENT DATE: 20150903
